FAERS Safety Report 19161680 (Version 1)
Quarter: 2021Q2

REPORT INFORMATION
  Report Type: Spontaneous
  Country: US (occurrence: US)
  Receive Date: 20210420
  Receipt Date: 20210420
  Transmission Date: 20210717
  Serious: No
  Sender: FDA-Public Use
  Company Number: None

PATIENT
  Age: 83 Year
  Sex: Male

DRUGS (1)
  1. SACUBITRIL/VALSARTAN [Suspect]
     Active Substance: SACUBITRIL\VALSARTAN
     Route: 048
     Dates: start: 20210331, end: 20210408

REACTIONS (3)
  - Dizziness [None]
  - Hypotension [None]
  - Acute kidney injury [None]

NARRATIVE: CASE EVENT DATE: 20210408
